FAERS Safety Report 12294724 (Version 1)
Quarter: 2016Q2

REPORT INFORMATION
  Report Type: Spontaneous
  Country: US (occurrence: None)
  Receive Date: 20160421
  Receipt Date: 20160421
  Transmission Date: 20160815
  Serious: Yes (Other)
  Sender: FDA-Public Use
  Company Number: None

PATIENT
  Age: 29 Year
  Sex: Female
  Weight: 81.65 kg

DRUGS (1)
  1. PARAGARD T 380A [Suspect]
     Active Substance: COPPER
     Dates: start: 20140630

REACTIONS (5)
  - Embedded device [None]
  - Exposure during pregnancy [None]
  - Device dislocation [None]
  - Pregnancy with contraceptive device [None]
  - Fallopian tube perforation [None]

NARRATIVE: CASE EVENT DATE: 20150331
